FAERS Safety Report 9982692 (Version 1)
Quarter: 2014Q1

REPORT INFORMATION
  Report Type: Report from Study
  Country: US (occurrence: US)
  Receive Date: 20140307
  Receipt Date: 20140307
  Transmission Date: 20141002
  Serious: Yes (Hospitalization)
  Sender: FDA-Public Use
  Company Number: US-ABBVIE-13P-163-1177434-00

PATIENT
  Age: 33 Year
  Sex: Male

DRUGS (4)
  1. HUMIRA [Suspect]
     Indication: CROHN^S DISEASE
     Dates: start: 20130830, end: 201309
  2. HUMIRA [Suspect]
     Route: 058
     Dates: start: 20131204
  3. COUMADIN [Concomitant]
     Indication: PRODUCT USED FOR UNKNOWN INDICATION
  4. DIABETIC MEDICATION [Concomitant]

REACTIONS (4)
  - Cerebrovascular accident [Recovered/Resolved]
  - Eye pain [Unknown]
  - Eyelid ptosis [Unknown]
  - Gaze palsy [Unknown]
